FAERS Safety Report 16544373 (Version 1)
Quarter: 2019Q3

REPORT INFORMATION
  Report Type: Report from Study
  Country: CO (occurrence: CO)
  Receive Date: 20190709
  Receipt Date: 20190709
  Transmission Date: 20191004
  Serious: Yes (Other)
  Sender: FDA-Public Use
  Company Number: PHHY2014CO028863

PATIENT
  Age: 45 Year
  Sex: Female

DRUGS (1)
  1. GILENYA [Suspect]
     Active Substance: FINGOLIMOD HYDROCHLORIDE
     Indication: MULTIPLE SCLEROSIS
     Dosage: 0.5 MG, QD
     Route: 048
     Dates: start: 20131017, end: 20190416

REACTIONS (16)
  - Urinary tract infection [Recovered/Resolved]
  - Eye irritation [Unknown]
  - Grip strength decreased [Unknown]
  - Endometrial disorder [Not Recovered/Not Resolved]
  - JC polyomavirus test positive [Not Recovered/Not Resolved]
  - Expanded disability status scale score increased [Not Recovered/Not Resolved]
  - Headache [Recovered/Resolved]
  - Back pain [Recovered/Resolved]
  - Cough [Unknown]
  - Migraine [Recovered/Resolved]
  - Ligament sprain [Recovered/Resolved]
  - Ecchymosis [Recovered/Resolved]
  - Cheilitis [Unknown]
  - Visual impairment [Recovered/Resolved]
  - Musculoskeletal disorder [Not Recovered/Not Resolved]
  - Endometrial thickening [Not Recovered/Not Resolved]

NARRATIVE: CASE EVENT DATE: 20140213
